FAERS Safety Report 19497618 (Version 3)
Quarter: 2022Q3

REPORT INFORMATION
  Report Type: Spontaneous
  Country: IN (occurrence: IN)
  Receive Date: 20210706
  Receipt Date: 20220728
  Transmission Date: 20221026
  Serious: Yes (Death, Other)
  Sender: FDA-Public Use
  Company Number: IN-SUN PHARMACEUTICAL INDUSTRIES LTD-2021R1-302282

PATIENT
  Age: 74 Year
  Sex: Male

DRUGS (1)
  1. METHOTREXATE [Suspect]
     Active Substance: METHOTREXATE
     Indication: Product used for unknown indication
     Dosage: 25 MILLIGRAM, DAILY
     Route: 065

REACTIONS (5)
  - Skin toxicity [Fatal]
  - SJS-TEN overlap [Fatal]
  - Septic shock [Fatal]
  - Pneumonia [Fatal]
  - Accidental overdose [Unknown]
